FAERS Safety Report 14573088 (Version 1)
Quarter: 2018Q1

REPORT INFORMATION
  Report Type: Spontaneous
  Country: GB (occurrence: GB)
  Receive Date: 20180226
  Receipt Date: 20180226
  Transmission Date: 20180509
  Serious: Yes (Hospitalization, Disabling, Other)
  Sender: FDA-Public Use
  Company Number: GB-ALLERGAN-1809475US

PATIENT
  Age: 44 Year
  Sex: Female

DRUGS (1)
  1. BOTOX [Suspect]
     Active Substance: ONABOTULINUMTOXINA
     Indication: PRODUCT USED FOR UNKNOWN INDICATION
     Dosage: 120 UNITS, SINGLE
     Route: 030

REACTIONS (9)
  - Memory impairment [Unknown]
  - Dysstasia [Unknown]
  - Speech disorder [Unknown]
  - Paraesthesia [Unknown]
  - Guillain-Barre syndrome [Unknown]
  - Hemiparesis [Recovering/Resolving]
  - Coordination abnormal [Unknown]
  - Hypoaesthesia [Unknown]
  - Dyspnoea [Unknown]

NARRATIVE: CASE EVENT DATE: 201506
